FAERS Safety Report 9676226 (Version 1)
Quarter: 2013Q4

REPORT INFORMATION
  Report Type: Spontaneous
  Country: JP (occurrence: JP)
  Receive Date: 20131107
  Receipt Date: 20131107
  Transmission Date: 20140711
  Serious: Yes (Other)
  Sender: FDA-Public Use
  Company Number: JP-TEVA-441474ISR

PATIENT
  Age: 37 Year
  Sex: Male
  Weight: 48.3 kg

DRUGS (2)
  1. HYDROCORTISONE [Suspect]
     Indication: ADRENAL INSUFFICIENCY
     Dosage: 30 MILLIGRAM DAILY; 30 MG/DAY; REDUCED TO 20 MG/DAY
     Route: 065
     Dates: start: 201205
  2. HYDROCORTISONE [Suspect]
     Indication: ADRENAL INSUFFICIENCY
     Dosage: 20 MILLIGRAM DAILY; 20 MG/DAY FROM D10 AFTER SURGERY
     Route: 065
     Dates: start: 201205

REACTIONS (1)
  - Secondary hyperthyroidism [Recovering/Resolving]
